FAERS Safety Report 12214583 (Version 1)
Quarter: 2016Q1

REPORT INFORMATION
  Report Type: Spontaneous
  Country: CH (occurrence: CH)
  Receive Date: 20160328
  Receipt Date: 20160328
  Transmission Date: 20160526
  Serious: Yes (Other)
  Sender: FDA-Public Use
  Company Number: CH-BAYER-2016-051003

PATIENT
  Age: 79 Year
  Sex: Female

DRUGS (13)
  1. CIPROXIN [Suspect]
     Active Substance: CIPROFLOXACIN
     Indication: ESCHERICHIA URINARY TRACT INFECTION
     Dosage: 500 MG, BID
     Route: 048
     Dates: start: 20151127, end: 20151202
  2. SIRDALUD [Interacting]
     Active Substance: TIZANIDINE
     Dosage: 4 MG, TID
     Dates: end: 20151202
  3. TORASEM [Concomitant]
     Active Substance: TORSEMIDE
     Dosage: 200 MG, QD
  4. CONCOR [Concomitant]
     Active Substance: BISOPROLOL FUMARATE
     Dosage: 5 MG, BID
     Dates: start: 20151126, end: 20151130
  5. TOBRADEX [Concomitant]
     Active Substance: DEXAMETHASONE\TOBRAMYCIN
     Dosage: 1 DF, TID
  6. VITAMIN A BLACHE [Concomitant]
     Dosage: 1 DF, QD
  7. KCL [Concomitant]
     Active Substance: POTASSIUM CHLORIDE
     Dosage: 1 DF, BID
  8. CONCOR [Concomitant]
     Active Substance: BISOPROLOL FUMARATE
     Dosage: 2.5 MG, QD
     Dates: start: 20151130
  9. MARCOUMAR [Concomitant]
     Active Substance: PHENPROCOUMON
     Dosage: UNK
     Route: 048
  10. SIMCORA [Concomitant]
     Active Substance: SIMVASTATIN
     Dosage: 40 MG, QD
  11. LASIX [Concomitant]
     Active Substance: FUROSEMIDE
     Dosage: 20 MG, QD
     Route: 042
     Dates: start: 20151128, end: 20151202
  12. MAGNESIUM [Concomitant]
     Active Substance: MAGNESIUM
     Dosage: 120 MG, BID
  13. TARGIN [Concomitant]
     Active Substance: NALOXONE HYDROCHLORIDE\OXYCODONE HYDROCHLORIDE
     Dosage: 1 DF, BID

REACTIONS (1)
  - Bradycardia [Not Recovered/Not Resolved]

NARRATIVE: CASE EVENT DATE: 20151128
